FAERS Safety Report 11766279 (Version 7)
Quarter: 2018Q2

REPORT INFORMATION
  Report Type: Report from Study
  Country: CA (occurrence: CA)
  Receive Date: 20151123
  Receipt Date: 20180414
  Transmission Date: 20180711
  Serious: Yes (Other)
  Sender: FDA-Public Use
  Company Number: CA-ROCHE-1356484

PATIENT
  Age: 51 Year
  Sex: Female

DRUGS (4)
  1. ERIVEDGE [Suspect]
     Active Substance: VISMODEGIB
     Indication: BASAL CELL CARCINOMA
     Route: 048
     Dates: start: 20121029, end: 201307
  2. ERIVEDGE [Suspect]
     Active Substance: VISMODEGIB
     Route: 048
     Dates: start: 20131108, end: 20141222
  3. ERIVEDGE [Suspect]
     Active Substance: VISMODEGIB
     Route: 048
     Dates: start: 201508
  4. VITAMIN C [Concomitant]
     Active Substance: ASCORBIC ACID
     Route: 065

REACTIONS (22)
  - Amenorrhoea [Unknown]
  - Weight decreased [Recovering/Resolving]
  - Asthenia [Not Recovered/Not Resolved]
  - Nausea [Unknown]
  - Vomiting [Unknown]
  - Human chorionic gonadotropin increased [Unknown]
  - Alopecia [Unknown]
  - Arthralgia [Unknown]
  - Nasopharyngitis [Unknown]
  - Muscle spasms [Not Recovered/Not Resolved]
  - Decreased appetite [Unknown]
  - Insomnia [Unknown]
  - Muscular weakness [Unknown]
  - Breast mass [Not Recovered/Not Resolved]
  - Epigastric discomfort [Unknown]
  - Ageusia [Unknown]
  - Anosmia [Unknown]
  - Headache [Unknown]
  - Drug intolerance [Unknown]
  - Abdominal pain [Unknown]
  - Musculoskeletal pain [Not Recovered/Not Resolved]
  - Back pain [Not Recovered/Not Resolved]

NARRATIVE: CASE EVENT DATE: 20131106
